FAERS Safety Report 4788970-3 (Version None)
Quarter: 2005Q4

REPORT INFORMATION
  Report Type: 
  Country: None (occurrence: None)
  Receive Date: 20051004
  Receipt Date: 20050921
  Transmission Date: 20060501
  Serious: Yes (Hospitalization)
  Sender: FDA-Public Use
  Company Number: 160567

PATIENT
  Age: 34 Year
  Sex: Female

DRUGS (2)
  1. AVONEX [Suspect]
     Indication: MULTIPLE SCLEROSIS
     Dosage: 30 UG; QW; IM
     Route: 030
     Dates: start: 20001215, end: 20020330
  2. AVONEX [Suspect]
     Indication: MULTIPLE SCLEROSIS
     Dosage: 30 UG; QW; IM
     Route: 030
     Dates: start: 20040310

REACTIONS (15)
  - AREFLEXIA [None]
  - BLADDER DISORDER [None]
  - CONDITION AGGRAVATED [None]
  - FATIGUE [None]
  - HYPOAESTHESIA [None]
  - INJECTION SITE HAEMORRHAGE [None]
  - INTESTINAL FUNCTIONAL DISORDER [None]
  - JOINT RANGE OF MOTION DECREASED [None]
  - LESION OF SCIATIC NERVE [None]
  - LUMBOSACRAL PLEXUS LESION [None]
  - MOTOR DYSFUNCTION [None]
  - NERVE ROOT LESION [None]
  - NEUROFIBROMA [None]
  - NEUROFIBROMATOSIS [None]
  - PAIN IN EXTREMITY [None]
